FAERS Safety Report 4975622-X (Version None)
Quarter: 2006Q2

REPORT INFORMATION
  Report Type: 
  Country: None (occurrence: None)
  Receive Date: 20060411
  Receipt Date: 20060324
  Transmission Date: 20061013
  Serious: Yes (Hospitalization)
  Sender: FDA-Public Use
  Company Number: US200603006409

PATIENT
  Age: 70 Year
  Sex: Female

DRUGS (3)
  1. EVISTA [Suspect]
     Indication: OSTEOPOROSIS
     Dosage: ORAL
     Route: 048
     Dates: start: 19990101
  2. ASPIRIN [Concomitant]
  3. PLAVIX [Concomitant]

REACTIONS (4)
  - HEART RATE INCREASED [None]
  - KNEE ARTHROPLASTY [None]
  - LIMB INJURY [None]
  - MYOCARDIAL INFARCTION [None]
